FAERS Safety Report 6008326-5 (Version None)
Quarter: 2008Q4

REPORT INFORMATION
  Report Type: 
  Country: None (occurrence: None)
  Receive Date: 20081215
  Receipt Date: 20081204
  Transmission Date: 20090506
  Serious: Yes (Hospitalization)
  Sender: FDA-Public Use
  Company Number: 2008SP024868

PATIENT
  Age: 82 Year
  Sex: Male

DRUGS (7)
  1. DIAFUSOR (GLYCERYL TRINITRATE) (GLYCERYL TRINITRATE) [Suspect]
     Indication: CARDIAC FAILURE
     Dosage: 10 MG; QD; CUT
  2. ALLOPURINOL [Suspect]
     Indication: DRUG USE FOR UNKNOWN INDICATION
  3. PREVISCAN (FLUINDIONE) [Suspect]
     Indication: PHLEBITIS
     Dosage: 10 MG
  4. ANDROCUR (CYPROTERONE ACETATE) [Suspect]
     Indication: PROSTATE CANCER
     Dosage: 3 DF; QD
  5. PAROXETINE HYDROCHLORIDE [Suspect]
     Indication: DEPRESSION
     Dosage: 20 MG
     Dates: start: 19991115, end: 19991122
  6. DILTIAZEM HYDROCHLORIDE [Suspect]
     Indication: DRUG USE FOR UNKNOWN INDICATION
     Dosage: 90 MG; BID
  7. FENOFIBRATE [Suspect]
     Indication: DRUG USE FOR UNKNOWN INDICATION
     Dosage: 3 DF; QD

REACTIONS (2)
  - CONFUSIONAL STATE [None]
  - HYPONATRAEMIA [None]
